FAERS Safety Report 9116065 (Version 3)
Quarter: 2013Q1

REPORT INFORMATION
  Report Type: Report from Study
  Country: HU (occurrence: HU)
  Receive Date: 20130225
  Receipt Date: 20130306
  Transmission Date: 20140127
  Serious: Yes (Hospitalization, Other)
  Sender: FDA-Public Use
  Company Number: HU-ROCHE-1193613

PATIENT
  Sex: Female

DRUGS (1)
  1. XELODA [Suspect]
     Indication: PRODUCT USED FOR UNKNOWN INDICATION
     Route: 048
     Dates: start: 20130211, end: 201302

REACTIONS (6)
  - Pyrexia [Unknown]
  - Blood count abnormal [Unknown]
  - Disease progression [Unknown]
  - Ascites [Unknown]
  - Blood bilirubin increased [Unknown]
  - Jaundice [Unknown]
